FAERS Safety Report 20506377 (Version 1)
Quarter: 2022Q1

REPORT INFORMATION
  Report Type: Spontaneous
  Country: US (occurrence: US)
  Receive Date: 20220223
  Receipt Date: 20220223
  Transmission Date: 20220423
  Serious: Yes (Other)
  Sender: FDA-Public Use
  Company Number: US-MYLANLABS-2022M1014522

PATIENT
  Age: 12 Year
  Sex: Male

DRUGS (7)
  1. CARBOPLATIN [Suspect]
     Active Substance: CARBOPLATIN
     Indication: Glioneuronal tumour
     Dosage: UNK
     Route: 065
  2. VINORELBINE [Suspect]
     Active Substance: VINORELBINE TARTRATE
     Indication: Glioneuronal tumour
     Dosage: UNK
     Route: 065
  3. VINCRISTINE [Suspect]
     Active Substance: VINCRISTINE
     Indication: Glioneuronal tumour
     Dosage: UNK
     Route: 065
  4. VINCRISTINE [Suspect]
     Active Substance: VINCRISTINE
     Dosage: TPCV REGIMEN
     Route: 065
  5. PROCARBAZINE [Suspect]
     Active Substance: PROCARBAZINE
     Indication: Glioneuronal tumour
     Dosage: TPCV REGIMEN
     Route: 065
  6. THIOGUANINE [Suspect]
     Active Substance: THIOGUANINE
     Indication: Glioneuronal tumour
     Dosage: TPCV REGIMEN
     Route: 065
  7. LOMUSTINE [Suspect]
     Active Substance: LOMUSTINE
     Indication: Glioneuronal tumour
     Dosage: TPCV REGIMEN
     Route: 065

REACTIONS (1)
  - Drug ineffective [Unknown]
